FAERS Safety Report 11799718 (Version 12)
Quarter: 2020Q1

REPORT INFORMATION
  Report Type: Report from Study
  Country: CO (occurrence: CO)
  Receive Date: 20151203
  Receipt Date: 20200108
  Transmission Date: 20200409
  Serious: Yes (Hospitalization)
  Sender: FDA-Public Use
  Company Number: PHHY2015CO158498

PATIENT
  Age: 34 Year
  Sex: Female
  Weight: 56 kg

DRUGS (5)
  1. EXJADE [Suspect]
     Active Substance: DEFERASIROX
     Indication: SICKLE CELL ANAEMIA
     Dosage: 500 MG (10 MG/KG), QD
     Route: 048
     Dates: start: 20150818
  2. FOLIC ACID. [Concomitant]
     Active Substance: FOLIC ACID
     Indication: PRODUCT USED FOR UNKNOWN INDICATION
     Dosage: 1 MG, QD
     Route: 048
  3. EXJADE [Suspect]
     Active Substance: DEFERASIROX
     Dosage: 720 MG, QD
     Route: 048
  4. HIDROXIUREA [Concomitant]
     Active Substance: HYDROXYUREA
     Indication: PRODUCT USED FOR UNKNOWN INDICATION
     Dosage: 500 MG, QID
     Route: 048
  5. JADENU [Suspect]
     Active Substance: DEFERASIROX
     Indication: SICKLE CELL DISEASE
     Dosage: 720 MG, QD
     Route: 048

REACTIONS (16)
  - Dyspnoea [Unknown]
  - Bone pain [Not Recovered/Not Resolved]
  - Haemoglobin decreased [Unknown]
  - Pain [Unknown]
  - Peripheral swelling [Unknown]
  - Back pain [Not Recovered/Not Resolved]
  - Abdominal pain upper [Unknown]
  - Arthralgia [Unknown]
  - Gait disturbance [Unknown]
  - Sickle cell anaemia with crisis [Unknown]
  - Insomnia [Unknown]
  - Pyrexia [Unknown]
  - Chest pain [Not Recovered/Not Resolved]
  - Pain in extremity [Unknown]
  - Malaise [Unknown]
  - Serum ferritin increased [Unknown]

NARRATIVE: CASE EVENT DATE: 20170829
